FAERS Safety Report 22034832 (Version 1)
Quarter: 2023Q1

REPORT INFORMATION
  Report Type: Spontaneous
  Country: US (occurrence: US)
  Receive Date: 20230224
  Receipt Date: 20230224
  Transmission Date: 20230418
  Serious: No
  Sender: FDA-Public Use
  Company Number: US-ARIS GLOBAL-NPA-2023-00043

PATIENT
  Age: 19 Year
  Sex: Female

DRUGS (2)
  1. HYFTOR [Suspect]
     Active Substance: SIROLIMUS
     Indication: Angiofibroma
     Route: 003
  2. HYFTOR [Suspect]
     Active Substance: SIROLIMUS
     Route: 003
     Dates: start: 202301

REACTIONS (2)
  - Application site pain [Recovering/Resolving]
  - Application site exfoliation [Recovering/Resolving]
